FAERS Safety Report 4566200-5 (Version None)
Quarter: 2005Q1

REPORT INFORMATION
  Report Type: 
  Country: None (occurrence: None)
  Receive Date: 20050110
  Receipt Date: 20050110
  Transmission Date: 20050727
  Serious: No
  Sender: FDA-Public Use
  Company Number: None

PATIENT
  Age: 68 Year
  Sex: Male
  Weight: 73.9363 kg

DRUGS (1)
  1. ZYBAN (GENERIC) 150 MG BID [Suspect]
     Indication: NICOTINE DEPENDENCE
     Dosage: 150 MG BID
     Dates: start: 20040901

REACTIONS (4)
  - AGITATION [None]
  - INSOMNIA [None]
  - TACHYCARDIA [None]
  - TREMOR [None]
